FAERS Safety Report 21320706 (Version 1)
Quarter: 2022Q3

REPORT INFORMATION
  Report Type: Spontaneous
  Country: JP (occurrence: JP)
  Receive Date: 20220912
  Receipt Date: 20220912
  Transmission Date: 20221027
  Serious: Yes (Other)
  Sender: FDA-Public Use
  Company Number: JP-KYOWAKIRIN-2022AKK013832

PATIENT
  Age: 80 Year
  Sex: Male

DRUGS (1)
  1. PEGFILGRASTIM [Suspect]
     Active Substance: PEGFILGRASTIM
     Indication: Colony stimulating factor therapy
     Dosage: UNK
     Route: 058

REACTIONS (2)
  - Febrile neutropenia [Unknown]
  - Drug ineffective [Unknown]
